FAERS Safety Report 10586712 (Version 1)
Quarter: 2014Q4

REPORT INFORMATION
  Report Type: Spontaneous
  Country: US (occurrence: None)
  Receive Date: 20141114
  Receipt Date: 20141114
  Transmission Date: 20150529
  Serious: Yes (Hospitalization, Other)
  Sender: FDA-Public Use
  Company Number: None

PATIENT
  Age: 84 Year
  Sex: Female
  Weight: 82 kg

DRUGS (15)
  1. MULTIVITAMIN [Concomitant]
     Active Substance: VITAMINS
  2. FLUTICASONE [Concomitant]
     Active Substance: FLUTICASONE\FLUTICASONE PROPIONATE
  3. FISH OIL [Concomitant]
     Active Substance: FISH OIL
  4. FLAX SEED [Concomitant]
     Active Substance: FLAX SEED
  5. ACETAMINOPHEN. [Concomitant]
     Active Substance: ACETAMINOPHEN
  6. AZELASTINE [Concomitant]
     Active Substance: AZELASTINE
  7. CHOLECALCIFEROL [Concomitant]
     Active Substance: CHOLECALCIFEROL
  8. FUROSEMIDE. [Concomitant]
     Active Substance: FUROSEMIDE
  9. OMEPRAZOLE. [Concomitant]
     Active Substance: OMEPRAZOLE
  10. CALCIUM CARBONATE. [Concomitant]
     Active Substance: CALCIUM CARBONATE
  11. PAZOPANIB [Suspect]
     Active Substance: PAZOPANIB
     Indication: METASTATIC RENAL CELL CARCINOMA
     Dosage: 800 MG QD ORAL ONE DOSE
     Route: 048
  12. LORAZEPAM. [Concomitant]
     Active Substance: LORAZEPAM
  13. OCULAR VITAMIN [Concomitant]
  14. PAZOPANIB [Suspect]
     Active Substance: PAZOPANIB
     Indication: METASTASES TO LUNG
     Dosage: 800 MG QD ORAL ONE DOSE
     Route: 048
  15. SIMETHICONE [Concomitant]
     Active Substance: DIMETHICONE\SILICON DIOXIDE\SIMETHICONE

REACTIONS (4)
  - Electrocardiogram T wave inversion [None]
  - Headache [None]
  - Nausea [None]
  - Blood pressure increased [None]

NARRATIVE: CASE EVENT DATE: 20141103
